FAERS Safety Report 10070940 (Version 1)
Quarter: 2014Q2

REPORT INFORMATION
  Report Type: Report from Study
  Country: NL (occurrence: NL)
  Receive Date: 20140410
  Receipt Date: 20140410
  Transmission Date: 20141212
  Serious: Yes (Hospitalization)
  Sender: FDA-Public Use
  Company Number: PHHY2013NL156155

PATIENT
  Age: 75 Year
  Sex: Female

DRUGS (1)
  1. SANDOSTATIN LAR [Suspect]
     Dosage: 20 MG, TWICE, ONCE EVERY 4 WEEKS
     Dates: start: 20110422

REACTIONS (1)
  - Haemorrhage [Unknown]
